FAERS Safety Report 7207374-7 (Version None)
Quarter: 2010Q4

REPORT INFORMATION
  Report Type: 
  Country: None (occurrence: None)
  Receive Date: 20101217
  Receipt Date: 20101213
  Transmission Date: 20110411
  Serious: Yes (Other)
  Sender: FDA-Public Use
  Company Number: 2010SP061929

PATIENT
  Age: 42 Year
  Sex: Female

DRUGS (3)
  1. IMPLANON [Suspect]
     Indication: CONTRACEPTION
     Dosage: 1 DF; ; SC
     Route: 058
     Dates: start: 20100521
  2. ETONOGESTREL (IMPLANT RADIOPAQUE) [Concomitant]
  3. STILNOX [Concomitant]

REACTIONS (3)
  - BREAST CALCIFICATIONS [None]
  - BREAST CANCER IN SITU [None]
  - NECROSIS [None]
